FAERS Safety Report 6640746-8 (Version None)
Quarter: 2010Q1

REPORT INFORMATION
  Report Type: 
  Country: None (occurrence: None)
  Receive Date: 20100318
  Receipt Date: 20100308
  Transmission Date: 20100710
  Serious: Yes (Other)
  Sender: FDA-Public Use
  Company Number: B0640577A

PATIENT
  Age: 47 Year
  Sex: Female

DRUGS (3)
  1. ALLI [Suspect]
     Route: 065
  2. SEROPLEX [Concomitant]
     Route: 065
  3. TRIPHASIL-21 [Concomitant]
     Route: 065

REACTIONS (2)
  - ERYTHEMA [None]
  - PSORIASIS [None]
